FAERS Safety Report 8761025 (Version 2)
Quarter: 2012Q4

REPORT INFORMATION
  Report Type: 
  Country: JP (occurrence: JP)
  Receive Date: 20120830
  Receipt Date: 20120911
  Transmission Date: 20130627
  Serious: Yes (Other)
  Sender: FDA-Public Use
  Company Number: JP-B.I. PHARMACEUTICALS,INC./RIDGEFIELD-2012-BP-15540NB

PATIENT
  Sex: Female
  Weight: 48.9 kg

DRUGS (6)
  1. PERSANTIN [Suspect]
     Indication: NEPHRITIS
     Dosage: 300 mg
     Route: 065
     Dates: start: 200002
  2. PERSANTIN [Suspect]
     Indication: PROTEIN URINE
  3. PREDONINE [Concomitant]
     Dosage: 5 mg
     Route: 065
     Dates: start: 200002
  4. GASTER [Concomitant]
     Dosage: 10 mg
     Route: 065
     Dates: start: 200002
  5. GLAKAY [Concomitant]
     Dosage: 45 mg
     Route: 065
     Dates: start: 200002
  6. NU-LOTAN [Concomitant]
     Dosage: 100 mg
     Route: 065
     Dates: start: 200002

REACTIONS (1)
  - Abortion induced [Unknown]
